FAERS Safety Report 9028509 (Version 1)
Quarter: 2013Q1

REPORT INFORMATION
  Report Type: Report from Study
  Country: US (occurrence: US)
  Receive Date: 20130124
  Receipt Date: 20130124
  Transmission Date: 20140127
  Serious: Yes (Hospitalization)
  Sender: FDA-Public Use
  Company Number: US-ROCHE-1179151

PATIENT
  Age: 58 Year
  Sex: Male
  Weight: 78.6 kg

DRUGS (24)
  1. RITUXIMAB [Suspect]
     Indication: CHRONIC GRAFT VERSUS HOST DISEASE
     Dosage: FORM 100 MG AND 500 MG
     Route: 065
  2. CELLCEPT [Concomitant]
     Route: 065
  3. SIROLIMUS [Concomitant]
     Route: 065
     Dates: start: 20130101
  4. VFEND [Concomitant]
     Route: 065
  5. PRILOSEC [Concomitant]
     Route: 065
  6. K-DUR [Concomitant]
     Route: 065
  7. MAG PLUS = MAGNESIUM OXIDE, DICALCIUM PHOSPHATE [Concomitant]
     Route: 065
  8. LANTUS [Concomitant]
     Dosage: 20 UNITS AT BEDTIME
     Route: 065
  9. LOVASTATIN [Concomitant]
     Dosage: 2 QAM
     Route: 065
  10. WELLBUTRIN [Concomitant]
     Route: 065
  11. NORVASC [Concomitant]
     Route: 065
  12. PEN VK [Concomitant]
     Route: 065
  13. CALCIUM [Concomitant]
  14. ACYCLOVIR [Concomitant]
     Route: 050
     Dates: start: 20130103
  15. ISOPTO TEARS [Concomitant]
     Dosage: 1 DROP
     Route: 050
     Dates: start: 20130104
  16. ARTIFICIAL TEARS [Concomitant]
     Route: 050
     Dates: start: 20130101
  17. BUPROPION [Concomitant]
     Route: 050
  18. INSULIN [Concomitant]
     Dosage: 20 UNITS
     Route: 065
     Dates: start: 20130103
  19. LEVOFLOXACIN [Concomitant]
     Dosage: 20 UNIT
     Route: 042
     Dates: start: 20130103
  20. LINEZOLID [Concomitant]
     Route: 042
     Dates: start: 20130102
  21. METRONIDAZOLE [Concomitant]
     Route: 042
     Dates: start: 20120131
  22. TACROLIMUS [Concomitant]
     Route: 065
     Dates: start: 20121231
  23. FUROSEMIDE [Concomitant]
     Route: 042
     Dates: start: 20121231
  24. GLIPIZIDE [Concomitant]
     Route: 048
     Dates: start: 20130101

REACTIONS (2)
  - Hypoxia [Unknown]
  - Pneumonia [Unknown]
